FAERS Safety Report 7333134-2 (Version None)
Quarter: 2011Q1

REPORT INFORMATION
  Report Type: 
  Country: None (occurrence: None)
  Receive Date: 20110304
  Receipt Date: 20110222
  Transmission Date: 20110831
  Serious: Yes (Hospitalization, Other)
  Sender: FDA-Public Use
  Company Number: US-ACTELION-A-NJ2008-23122

PATIENT

DRUGS (2)
  1. REVATIO [Concomitant]
  2. VENTAVIS [Suspect]
     Indication: PULMONARY ARTERIAL HYPERTENSION
     Dosage: 5 ?G, 6XDAILY
     Route: 055
     Dates: start: 20070101, end: 20101217

REACTIONS (10)
  - DEPRESSION [None]
  - JOINT INJURY [None]
  - SKIN INJURY [None]
  - FALL [None]
  - INJURY [None]
  - HEADACHE [None]
  - DIZZINESS [None]
  - SYNCOPE [None]
  - WHIPLASH INJURY [None]
  - FACE INJURY [None]
